FAERS Safety Report 4766622-3 (Version None)
Quarter: 2005Q3

REPORT INFORMATION
  Report Type: 
  Country: None (occurrence: None)
  Receive Date: 20050912
  Receipt Date: 20050825
  Transmission Date: 20060218
  Serious: Yes (Disabling)
  Sender: FDA-Public Use
  Company Number: B0392221A

PATIENT
  Age: 85 Year
  Sex: Female

DRUGS (5)
  1. PAXIL [Suspect]
     Indication: DEPRESSION
  2. ASPIRIN [Concomitant]
  3. LOSARTAN POTASSIUM [Concomitant]
  4. HYDROCHLOROTHIAZIDE [Concomitant]
  5. LEVOFLOXACIN [Concomitant]

REACTIONS (2)
  - ABASIA [None]
  - TREMOR [None]
